FAERS Safety Report 10033323 (Version 1)
Quarter: 2014Q1

REPORT INFORMATION
  Report Type: Spontaneous
  Country: AU (occurrence: AU)
  Receive Date: 20140325
  Receipt Date: 20140325
  Transmission Date: 20141002
  Serious: Yes (Hospitalization)
  Sender: FDA-Public Use
  Company Number: AU-ROCHE-1364755

PATIENT
  Age: 69 Year
  Sex: Female

DRUGS (6)
  1. BEVACIZUMAB [Suspect]
     Indication: PRODUCT USED FOR UNKNOWN INDICATION
     Route: 042
     Dates: start: 20130520, end: 20130612
  2. CAPECITABINE [Suspect]
     Indication: PRODUCT USED FOR UNKNOWN INDICATION
     Route: 048
     Dates: start: 20130520, end: 20130618
  3. OXALIPLATIN [Suspect]
     Indication: PRODUCT USED FOR UNKNOWN INDICATION
     Route: 042
     Dates: start: 20130520, end: 20130612
  4. MICARDIS [Concomitant]
  5. OROXINE [Concomitant]
  6. SIMVASTATIN [Concomitant]

REACTIONS (1)
  - Gastroenteritis [Recovered/Resolved]
